FAERS Safety Report 16902426 (Version 1)
Quarter: 2019Q4

REPORT INFORMATION
  Report Type: Spontaneous
  Country: US (occurrence: US)
  Receive Date: 20191010
  Receipt Date: 20191010
  Transmission Date: 20200122
  Serious: No
  Sender: FDA-Public Use
  Company Number: US-HTU-2019US019267

PATIENT
  Sex: Male

DRUGS (3)
  1. VALCHLOR [Suspect]
     Active Substance: MECHLORETHAMINE
     Dosage: THIN FILM, Q 3DAYS
     Route: 061
  2. VALCHLOR [Suspect]
     Active Substance: MECHLORETHAMINE
     Indication: CUTANEOUS T-CELL LYMPHOMA
     Dosage: THIN FILM, QD
     Route: 061
  3. VALCHLOR [Suspect]
     Active Substance: MECHLORETHAMINE
     Dosage: UNK, QOD
     Route: 061

REACTIONS (6)
  - Condition aggravated [Unknown]
  - Application site pain [Unknown]
  - Skin lesion [Unknown]
  - Erythema [Unknown]
  - Skin hyperpigmentation [Unknown]
  - Application site erosion [Recovered/Resolved]
